FAERS Safety Report 8208106-6 (Version None)
Quarter: 2012Q1

REPORT INFORMATION
  Report Type: 
  Country: None (occurrence: None)
  Receive Date: 20120314
  Receipt Date: 20120306
  Transmission Date: 20120608
  Serious: Yes (Hospitalization)
  Sender: FDA-Public Use
  Company Number: PHHY2012AR020335

PATIENT
  Sex: Female

DRUGS (4)
  1. ANTICOAGULANTS [Concomitant]
     Dosage: UNK
  2. DIOVAN [Suspect]
     Indication: HYPERTENSION
     Dosage: 1.5 DF (160 MG) DAILY
     Dates: start: 20060101
  3. DIOVAN [Suspect]
     Dosage: 1 DF (160 MG) DAILY
  4. CARVEDILOL [Concomitant]
     Dosage: UNK

REACTIONS (6)
  - WRONG TECHNIQUE IN DRUG USAGE PROCESS [None]
  - ARRHYTHMIA [None]
  - BLOOD PRESSURE FLUCTUATION [None]
  - DRUG INTOLERANCE [None]
  - FEELING ABNORMAL [None]
  - DIZZINESS [None]
